FAERS Safety Report 8260169-8 (Version None)
Quarter: 2012Q2

REPORT INFORMATION
  Report Type: 
  Country: None (occurrence: None)
  Receive Date: 20120404
  Receipt Date: 20120330
  Transmission Date: 20120825
  Serious: Yes (Life-Threatening)
  Sender: FDA-Public Use
  Company Number: US-JNJFOC-20120302662

PATIENT
  Sex: Female

DRUGS (15)
  1. PROTONIX [Concomitant]
     Route: 048
  2. OXYCODONE HCL [Concomitant]
     Dosage: TWICE DAILY OR AS NEEDED
     Route: 048
  3. BACLOFEN [Concomitant]
     Route: 048
  4. PRIMIDONE [Concomitant]
     Route: 048
  5. PHENERGAN HCL [Concomitant]
     Route: 048
  6. FENOFIBRATE [Concomitant]
     Route: 048
  7. PROZAC [Suspect]
     Route: 048
     Dates: end: 20120302
  8. RANITIDINE [Concomitant]
     Route: 048
  9. PROZAC [Suspect]
     Indication: DEPRESSION
     Route: 048
  10. VALIUM [Concomitant]
     Route: 048
  11. ALLOPURINOL [Concomitant]
     Route: 048
  12. CARAFATE [Concomitant]
     Route: 048
  13. INVEGA SUSTENNA [Suspect]
     Indication: SCHIZOAFFECTIVE DISORDER
     Route: 030
     Dates: start: 20110501
  14. SINGULAIR [Concomitant]
     Route: 048
  15. VESICARE [Concomitant]
     Route: 048

REACTIONS (2)
  - HEPATIC STEATOSIS [None]
  - ABNORMAL WEIGHT GAIN [None]
